FAERS Safety Report 25667495 (Version 1)
Quarter: 2025Q3

REPORT INFORMATION
  Report Type: Report from Study
  Country: NZ (occurrence: NZ)
  Receive Date: 20250811
  Receipt Date: 20250811
  Transmission Date: 20251021
  Serious: Yes (Death, Other)
  Sender: UCB
  Company Number: NZ-UCBSA-2025049687

PATIENT
  Age: 12 Year
  Sex: Female
  Weight: 27 kg

DRUGS (5)
  1. FENFLURAMINE HYDROCHLORIDE [Suspect]
     Active Substance: FENFLURAMINE HYDROCHLORIDE
     Indication: Severe myoclonic epilepsy of infancy
     Route: 048
     Dates: end: 20250308
  2. VALPROATE [Concomitant]
     Active Substance: VALPROIC ACID
     Indication: Severe myoclonic epilepsy of infancy
     Dosage: 200 MILLIGRAM, 2X/DAY (BID) ((15 MG/KG))
     Route: 048
  3. CLOBAZAM [Concomitant]
     Active Substance: CLOBAZAM
     Indication: Severe myoclonic epilepsy of infancy
  4. TOPIRAMATE [Concomitant]
     Active Substance: TOPIRAMATE
     Indication: Severe myoclonic epilepsy of infancy
     Dosage: 50 MILLIGRAM, 2X/DAY (BID) ((4 MG/KG))
     Route: 048
  5. STIRIPENTOL [Concomitant]
     Active Substance: STIRIPENTOL
     Indication: Severe myoclonic epilepsy of infancy
     Dosage: 500 MILLIGRAM, 2X/DAY (BID) (38 MG/KG)
     Route: 048

REACTIONS (8)
  - Cardiac arrest [Fatal]
  - Shock [Fatal]
  - Pneumonitis aspiration [Fatal]
  - Loss of consciousness [Unknown]
  - Febrile convulsion [Unknown]
  - Vomiting [Unknown]
  - Haemodynamic instability [Unknown]
  - Product use issue [Unknown]

NARRATIVE: CASE EVENT DATE: 20250308
